FAERS Safety Report 14977234 (Version 1)
Quarter: 2018Q2

REPORT INFORMATION
  Report Type: Spontaneous
  Country: DE (occurrence: DE)
  Receive Date: 20180606
  Receipt Date: 20180606
  Transmission Date: 20180711
  Serious: Yes (Hospitalization)
  Sender: FDA-Public Use
  Company Number: DE-TEVA-2018-DE-902380

PATIENT
  Age: 28 Year
  Sex: Male

DRUGS (1)
  1. DICLOFENAC [Suspect]
     Active Substance: DICLOFENAC
     Dosage: NK
     Route: 065

REACTIONS (4)
  - Tachycardia [Unknown]
  - Chest pain [Unknown]
  - Bradycardia [Unknown]
  - Orthostatic intolerance [Unknown]
